FAERS Safety Report 13875789 (Version 1)
Quarter: 2017Q3

REPORT INFORMATION
  Report Type: Spontaneous
  Country: JM (occurrence: JM)
  Receive Date: 20170817
  Receipt Date: 20170817
  Transmission Date: 20171127
  Serious: Yes (Other)
  Sender: FDA-Public Use
  Company Number: JM-ABBVIE-17K-086-2072566-00

PATIENT
  Sex: Female

DRUGS (1)
  1. HUMIRA [Suspect]
     Active Substance: ADALIMUMAB
     Indication: PSORIATIC ARTHROPATHY
     Route: 058
     Dates: start: 201702

REACTIONS (2)
  - Psoriatic arthropathy [Unknown]
  - HIV test positive [Unknown]

NARRATIVE: CASE EVENT DATE: 2017
